FAERS Safety Report 13762977 (Version 2)
Quarter: 2017Q3

REPORT INFORMATION
  Report Type: Spontaneous
  Country: GB (occurrence: GB)
  Receive Date: 20170718
  Receipt Date: 20170814
  Transmission Date: 20171127
  Serious: Yes (Hospitalization, Other)
  Sender: FDA-Public Use
  Company Number: GB-AUROBINDO-AUR-APL-2017-37216

PATIENT
  Age: 48 Year
  Sex: Female

DRUGS (1)
  1. MIRTAZAPINE. [Suspect]
     Active Substance: MIRTAZAPINE
     Indication: DEPRESSION
     Dosage: 15 MG, ONCE A DAY
     Route: 065

REACTIONS (4)
  - Hepatic steatosis [Recovered/Resolved]
  - Jaundice [Recovered/Resolved]
  - Oedema peripheral [Recovered/Resolved]
  - Lethargy [Recovered/Resolved]
